FAERS Safety Report 7100153-0 (Version None)
Quarter: 2010Q4

REPORT INFORMATION
  Report Type: 
  Country: None (occurrence: None)
  Receive Date: 20101112
  Receipt Date: 20100608
  Transmission Date: 20110411
  Serious: No
  Sender: FDA-Public Use
  Company Number: A0863786A

PATIENT
  Age: 82 Year
  Sex: Male

DRUGS (1)
  1. COREG [Suspect]
     Route: 065

REACTIONS (3)
  - ACTIVITIES OF DAILY LIVING IMPAIRED [None]
  - BEDRIDDEN [None]
  - MEDICATION ERROR [None]
